FAERS Safety Report 24388778 (Version 1)
Quarter: 2024Q4

REPORT INFORMATION
  Report Type: Spontaneous
  Country: ID (occurrence: ID)
  Receive Date: 20241002
  Receipt Date: 20241002
  Transmission Date: 20250114
  Serious: Yes (Death)
  Sender: ELI LILLY AND CO
  Company Number: ID-ELI_LILLY_AND_COMPANY-ID202409018391

PATIENT
  Age: 68 Year
  Sex: Female

DRUGS (2)
  1. RAMUCIRUMAB [Suspect]
     Active Substance: RAMUCIRUMAB
     Indication: Lung squamous cell carcinoma stage IV
     Dosage: UNK UNK, UNKNOWN
     Route: 065
     Dates: start: 202404
  2. DOCETAXEL [Concomitant]
     Active Substance: DOCETAXEL
     Indication: Squamous cell carcinoma of lung
     Dosage: UNK UNK, UNKNOWN
     Route: 065
     Dates: start: 202404

REACTIONS (1)
  - Embolism [Fatal]
